FAERS Safety Report 21602044 (Version 1)
Quarter: 2022Q4

REPORT INFORMATION
  Report Type: Spontaneous
  Country: US (occurrence: US)
  Receive Date: 20221116
  Receipt Date: 20221116
  Transmission Date: 20230113
  Serious: No
  Sender: FDA-Public Use
  Company Number: US-MAYNE PHARMA-2022MYN001143

PATIENT
  Sex: Male

DRUGS (1)
  1. AMIODARONE HYDROCHLORIDE [Suspect]
     Active Substance: AMIODARONE HYDROCHLORIDE
     Indication: Ventricular extrasystoles
     Dosage: 400 MG PER DAY (2X PER DAY) FOR 14 DAYS
     Route: 048
     Dates: start: 20220527, end: 20220610

REACTIONS (2)
  - Dyspepsia [Unknown]
  - Abdominal discomfort [Unknown]
